FAERS Safety Report 8623353-7 (Version None)
Quarter: 2012Q3

REPORT INFORMATION
  Report Type: 
  Country: None (occurrence: None)
  Receive Date: 20120827
  Receipt Date: 20120823
  Transmission Date: 20120928
  Serious: Yes (Hospitalization)
  Sender: FDA-Public Use
  Company Number: US-JNJFOC-20120711675

PATIENT
  Sex: Male
  Weight: 77.1 kg

DRUGS (5)
  1. IRON [Concomitant]
  2. PRILOSEC [Concomitant]
  3. PREDNISONE TAB [Concomitant]
  4. PROBIOTIC [Concomitant]
  5. REMICADE [Suspect]
     Indication: COLITIS ULCERATIVE
     Route: 042
     Dates: start: 20120220, end: 20120701

REACTIONS (1)
  - COLITIS ULCERATIVE [None]
